FAERS Safety Report 11010503 (Version 1)
Quarter: 2015Q2

REPORT INFORMATION
  Report Type: Spontaneous
  Country: CN (occurrence: CN)
  Receive Date: 20150410
  Receipt Date: 20150410
  Transmission Date: 20150821
  Serious: Yes (Other)
  Sender: FDA-Public Use
  Company Number: CN-MYLANLABS-2015M1011776

PATIENT

DRUGS (9)
  1. BLEOMYCIN [Suspect]
     Active Substance: BLEOMYCIN SULFATE
     Indication: KERATINISING SQUAMOUS CELL CARCINOMA OF NASOPHARYNX
     Dosage: TWO CYCLES WITH CISPLATIN, ETOPOSIDE
     Route: 065
  2. IFOSFAMIDE. [Suspect]
     Active Substance: IFOSFAMIDE
     Indication: KERATINISING SQUAMOUS CELL CARCINOMA OF NASOPHARYNX
     Dosage: THREE CYCLES WITH DOXORUBICIN
     Route: 065
  3. IFOSFAMIDE. [Suspect]
     Active Substance: IFOSFAMIDE
     Indication: OFF LABEL USE
  4. PIRARUBICIN [Suspect]
     Active Substance: PIRARUBICIN
     Indication: KERATINISING SQUAMOUS CELL CARCINOMA OF NASOPHARYNX
     Dosage: FOUR CYCLES WITH CISPLATIN, ETOPOSIDE
     Route: 065
  5. DOXORUBICIN [Suspect]
     Active Substance: DOXORUBICIN
     Indication: KERATINISING SQUAMOUS CELL CARCINOMA OF NASOPHARYNX
     Dosage: THREE CYCLES WITH IFOSFAMIDE
     Route: 065
  6. ETOPOSIDE. [Suspect]
     Active Substance: ETOPOSIDE
     Indication: KERATINISING SQUAMOUS CELL CARCINOMA OF NASOPHARYNX
     Dosage: FOUR CYCLES WITH CISPLATIN, PIRARUBICIN; TWO CYCLES WITH CISPLATIN, BLEOMYCIN
     Route: 065
  7. ETOPOSIDE. [Suspect]
     Active Substance: ETOPOSIDE
     Indication: OFF LABEL USE
  8. CISPLATIN. [Suspect]
     Active Substance: CISPLATIN
     Indication: OFF LABEL USE
  9. CISPLATIN. [Suspect]
     Active Substance: CISPLATIN
     Indication: KERATINISING SQUAMOUS CELL CARCINOMA OF NASOPHARYNX
     Dosage: FOUR CYCLES WITH ETOPOSIDE, PIRARUBICIN; TWO CYCLES WITH BLEOMYCIN, ETOPOSIDE
     Route: 065

REACTIONS (4)
  - Bone marrow failure [Recovering/Resolving]
  - Nausea [Unknown]
  - Decreased appetite [Unknown]
  - Mouth ulceration [Unknown]
